FAERS Safety Report 10178308 (Version 1)
Quarter: 2014Q2

REPORT INFORMATION
  Report Type: Spontaneous
  Country: US (occurrence: None)
  Receive Date: 20140516
  Receipt Date: 20140516
  Transmission Date: 20141212
  Serious: Yes (Other)
  Sender: FDA-Public Use
  Company Number: None

PATIENT
  Age: 60 Year
  Sex: Female
  Weight: 47.63 kg

DRUGS (8)
  1. ATORVASTATIN [Suspect]
     Indication: HYPERLIPIDAEMIA
     Dosage: LIPITOR 10MG DAILY, INCREASED TO 40 MG DAILY?ONE 10MG DAILY INCREASED TO 40 MG DAILY?ONCE DAILY?BY MOUTH
     Route: 048
     Dates: start: 2000, end: 20130515
  2. NIASPAN ER [Concomitant]
  3. ZETIA [EZETIMIBE] [Concomitant]
  4. LOSARTAN/HCTZ [HYZAAR] [Concomitant]
  5. METFORMIN ER [Concomitant]
  6. CARE ONE ESSENTIAL [Concomitant]
  7. ASPIRIN [Concomitant]
  8. CALCIUM [Concomitant]

REACTIONS (1)
  - Breast cyst [None]
